FAERS Safety Report 4895881-1 (Version None)
Quarter: 2006Q1

REPORT INFORMATION
  Report Type: 
  Country: None (occurrence: None)
  Receive Date: 20060125
  Receipt Date: 20060112
  Transmission Date: 20060701
  Serious: Yes (Other)
  Sender: FDA-Public Use
  Company Number: 2006007922

PATIENT
  Sex: Female

DRUGS (3)
  1. DOXORUBICIN HCL [Suspect]
     Indication: OVARIAN CANCER
     Dates: start: 20051207
  2. GRANISETRON    (GRANISETRON) [Concomitant]
  3. ONDANSETRON [Concomitant]

REACTIONS (1)
  - HYPOTONIA [None]
